FAERS Safety Report 8495372-5 (Version None)
Quarter: 2012Q3

REPORT INFORMATION
  Report Type: 
  Country: None (occurrence: None)
  Receive Date: 20120709
  Receipt Date: 20120629
  Transmission Date: 20120928
  Serious: Yes (Other)
  Sender: FDA-Public Use
  Company Number: US-ASTRAZENECA-2008UW10165

PATIENT
  Age: 88 Year
  Sex: Female
  Weight: 59 kg

DRUGS (8)
  1. LASIX [Concomitant]
  2. COUMADIN [Concomitant]
  3. LEPROL [Concomitant]
  4. PROTONIX [Concomitant]
  5. ARIMIDEX [Suspect]
     Indication: BREAST CANCER
     Route: 048
     Dates: start: 20030101
  6. INSPRA [Concomitant]
  7. AMIODARONE HCL [Concomitant]
  8. MAGNESIUM OXIDE [Concomitant]

REACTIONS (6)
  - ARTHRALGIA [None]
  - MUSCULOSKELETAL PAIN [None]
  - MUSCULAR WEAKNESS [None]
  - FALL [None]
  - NEOPLASM PROGRESSION [None]
  - DISEASE RECURRENCE [None]
